FAERS Safety Report 5721478-7 (Version None)
Quarter: 2008Q2

REPORT INFORMATION
  Report Type: 
  Country: None (occurrence: None)
  Receive Date: 20080424
  Receipt Date: 20080416
  Transmission Date: 20081010
  Serious: Yes (Other)
  Sender: FDA-Public Use
  Company Number: 18927

PATIENT
  Age: 71 Year
  Sex: Female

DRUGS (9)
  1. ETOPOSIDE [Suspect]
     Indication: NON-HODGKIN'S LYMPHOMA RECURRENT
     Dates: start: 19660201, end: 19960501
  2. MITOXANTRONE [Suspect]
     Indication: BREAST CANCER
  3. CYCLOPHOSPHAMIDE [Suspect]
     Indication: NON-HODGKIN'S LYMPHOMA RECURRENT
  4. PROCARBAZINE [Suspect]
     Indication: NON-HODGKIN'S LYMPHOMA
     Dates: start: 19860601, end: 19870419
  5. DOXORUBICIN HCL [Suspect]
     Indication: NON-HODGKIN'S LYMPHOMA RECURRENT
     Dates: start: 19960201, end: 19960501
  6. METHOTREXATE [Concomitant]
  7. FLUOROURACIL [Concomitant]
  8. VINBLASTINE SULFATE [Concomitant]
  9. BLEOMYCIN SULFATE [Concomitant]

REACTIONS (3)
  - CHRONIC MYELOID LEUKAEMIA [None]
  - CONDITION AGGRAVATED [None]
  - NON-HODGKIN'S LYMPHOMA [None]
